FAERS Safety Report 5811417-2 (Version None)
Quarter: 2008Q3

REPORT INFORMATION
  Report Type: 
  Country: None (occurrence: None)
  Receive Date: 20080715
  Receipt Date: 20080715
  Transmission Date: 20090109
  Serious: Yes (Other)
  Sender: FDA-Public Use
  Company Number: None

PATIENT
  Age: 36 Year
  Sex: Male

DRUGS (7)
  1. GAMUNEX [Suspect]
     Indication: AMYOTROPHIC LATERAL SCLEROSIS
     Dosage: ONCE GM/KG/DAY
     Dates: start: 20080525
  2. GAMUNEX [Suspect]
     Indication: NEUROPATHY PERIPHERAL
     Dosage: ONCE GM/KG/DAY
     Dates: start: 20080525
  3. GAMUNEX [Suspect]
     Indication: AMYOTROPHIC LATERAL SCLEROSIS
     Dosage: ONCE GM/KG/DAY
     Dates: start: 20080530
  4. GAMUNEX [Suspect]
     Indication: NEUROPATHY PERIPHERAL
     Dosage: ONCE GM/KG/DAY
     Dates: start: 20080530
  5. NEURONTIN [Concomitant]
  6. RILUTEK [Concomitant]
  7. MOTRIN [Concomitant]

REACTIONS (1)
  - LIVER FUNCTION TEST ABNORMAL [None]
